FAERS Safety Report 13784660 (Version 5)
Quarter: 2018Q4

REPORT INFORMATION
  Report Type: Spontaneous
  Country: IT (occurrence: IT)
  Receive Date: 20170725
  Receipt Date: 20181219
  Transmission Date: 20190204
  Serious: Yes (Death, Other)
  Sender: FDA-Public Use
  Company Number: IT-MYLANLABS-2017M1045048

PATIENT
  Age: 39 Year
  Sex: Female

DRUGS (2)
  1. DEPAKIN CHRONO [Suspect]
     Active Substance: VALPROIC ACID
     Indication: PRODUCT USED FOR UNKNOWN INDICATION
     Dosage: 300 MILLIGRAM, QD
     Route: 048
  2. CLOZAPINE. [Suspect]
     Active Substance: CLOZAPINE
     Indication: PSYCHOTIC DISORDER
     Dosage: 100 MILLIGRAM, QD
     Route: 048
     Dates: start: 20160401, end: 20161201

REACTIONS (4)
  - Psychotic disorder [Fatal]
  - Fall [Fatal]
  - Completed suicide [Fatal]
  - Pre-existing disease [Unknown]

NARRATIVE: CASE EVENT DATE: 20161216
